FAERS Safety Report 4635200-9 (Version None)
Quarter: 2005Q2

REPORT INFORMATION
  Report Type: 
  Country: None (occurrence: None)
  Receive Date: 20050414
  Receipt Date: 20050228
  Transmission Date: 20051028
  Serious: Yes (Death)
  Sender: FDA-Public Use
  Company Number: GB-BOEHRINGER INGELHEIM PHARMACEUTICALS, INC.-2005-UK-00344UK

PATIENT
  Sex: Male

DRUGS (10)
  1. TIOTROPIUM (00015/0190/A) [Suspect]
     Route: 055
     Dates: start: 20030115
  2. PREDNISOLONE [Concomitant]
     Dosage: 3 TABLETS DAILY
     Dates: start: 20030117
  3. UNIPHYLLIN CONTINUS [Concomitant]
     Dosage: 1 TABLET EVERY 12 HOURS
     Dates: start: 20020118
  4. FUROSEMIDE [Concomitant]
     Dates: start: 20011129
  5. ENSURE PLUS LIQUID FEED [Concomitant]
     Dosage: USE AS DIRECTED
     Dates: start: 20010723
  6. RAMIPRIL [Concomitant]
     Dates: start: 20001023
  7. SALBUTAMOL [Concomitant]
     Dosage: 5MG / 2.5ML 4 TIMES DAILY SALBUTAMOL UNIT DOSE NEBULISING SOLUTION
     Dates: start: 20000606
  8. SALBUTAMOL [Concomitant]
     Dosage: AEROSOL INHALER 100MCG / INHALATION 2 DOSES AS NEEDED
     Route: 055
  9. BECLOMETHASONE DIPROPIONATE [Concomitant]
     Dosage: 2 PUFFS TDS
     Route: 055
  10. WARFARIN [Concomitant]
     Dates: start: 20000418

REACTIONS (1)
  - CHRONIC OBSTRUCTIVE PULMONARY DISEASE [None]
